FAERS Safety Report 19986396 (Version 1)
Quarter: 2021Q4

REPORT INFORMATION
  Report Type: Spontaneous
  Country: US (occurrence: US)
  Receive Date: 20211022
  Receipt Date: 20211022
  Transmission Date: 20220303
  Serious: No
  Sender: FDA-Public Use
  Company Number: US-ANTARES PHARMA, INC.-2021-SPO-TX-0419

PATIENT

DRUGS (3)
  1. XYOSTED [Suspect]
     Active Substance: TESTOSTERONE ENANTHATE
     Indication: Gender dysphoria
     Dosage: 100 MG/0.5ML, UNKNOWN
     Route: 058
     Dates: start: 202107
  2. XYOSTED [Suspect]
     Active Substance: TESTOSTERONE ENANTHATE
     Indication: Product use in unapproved indication
     Dosage: 75 MG/0.5ML, UNKNOWN
     Route: 058
     Dates: start: 2021, end: 2021
  3. XYOSTED [Suspect]
     Active Substance: TESTOSTERONE ENANTHATE
     Dosage: 50 MG/0.5ML, UNKNOWN
     Route: 058
     Dates: start: 2021, end: 2021

REACTIONS (4)
  - Product dose omission issue [Unknown]
  - Injection site injury [Unknown]
  - Injection site haemorrhage [Unknown]
  - Product use in unapproved indication [Unknown]
